FAERS Safety Report 7116052-4 (Version None)
Quarter: 2010Q4

REPORT INFORMATION
  Report Type: 
  Country: None (occurrence: None)
  Receive Date: 20101122
  Receipt Date: 20101112
  Transmission Date: 20110411
  Serious: Yes (Hospitalization)
  Sender: FDA-Public Use
  Company Number: US-ASTRAZENECA-2010SE54171

PATIENT
  Age: 82 Year
  Sex: Male

DRUGS (8)
  1. TENORMIN [Suspect]
     Route: 048
     Dates: start: 20100706
  2. ISOSORBIDE MONONITRATE [Suspect]
     Indication: ACUTE CORONARY SYNDROME
     Route: 048
     Dates: start: 20100706, end: 20100713
  3. ASPIRIN [Suspect]
     Indication: ACUTE CORONARY SYNDROME
     Route: 048
     Dates: start: 20100706
  4. PLAVIX [Suspect]
     Indication: ACUTE CORONARY SYNDROME
     Route: 048
     Dates: start: 20100709, end: 20100714
  5. ATORVASTATIN CALCIUM [Suspect]
     Indication: ACUTE CORONARY SYNDROME
     Route: 048
     Dates: start: 20100706, end: 20100712
  6. NORVASC [Suspect]
     Indication: ANGINA PECTORIS
     Route: 048
     Dates: start: 20100706, end: 20100730
  7. DISTRANEURINE [Suspect]
     Indication: AGITATION
     Route: 048
     Dates: start: 20100706, end: 20100707
  8. PANTOPRAZOLE [Suspect]
     Indication: PROPHYLAXIS AGAINST GASTROINTESTINAL ULCER
     Route: 048
     Dates: start: 20100709

REACTIONS (1)
  - HEPATITIS CHOLESTATIC [None]
